FAERS Safety Report 7312296-7 (Version None)
Quarter: 2011Q1

REPORT INFORMATION
  Report Type: 
  Country: None (occurrence: None)
  Receive Date: 20110224
  Receipt Date: 20110216
  Transmission Date: 20110831
  Serious: Yes (Hospitalization)
  Sender: FDA-Public Use
  Company Number: B0701307A

PATIENT
  Sex: Male
  Weight: 53 kg

DRUGS (4)
  1. SPIRIVA [Concomitant]
     Indication: EMPHYSEMA
     Dosage: 18MCG PER DAY
     Route: 055
  2. SERETIDE [Suspect]
     Indication: EMPHYSEMA
     Dosage: 500MCG PER DAY
     Route: 055
     Dates: start: 20090831, end: 20100301
  3. THEO-DUR [Concomitant]
     Indication: EMPHYSEMA
     Dosage: 200MG PER DAY
     Route: 048
  4. MEPTIN AIR [Concomitant]
     Indication: EMPHYSEMA
     Route: 055

REACTIONS (2)
  - PO2 DECREASED [None]
  - PNEUMOTHORAX [None]
